FAERS Safety Report 8772546 (Version 1)
Quarter: 2012Q4

REPORT INFORMATION
  Report Type: 
  Country: FR (occurrence: FR)
  Receive Date: 20120905
  Receipt Date: 20120905
  Transmission Date: 20130627
  Serious: Yes (Hospitalization)
  Sender: FDA-Public Use
  Company Number: FR-ROCHE-1109630

PATIENT
  Age: 67 Year
  Sex: Female

DRUGS (6)
  1. PEGASYS [Suspect]
     Indication: PRODUCT USED FOR UNKNOWN INDICATION
     Route: 058
     Dates: start: 20110916, end: 20120529
  2. COPEGUS [Suspect]
     Indication: PRODUCT USED FOR UNKNOWN INDICATION
     Route: 048
     Dates: start: 20110916, end: 20120529
  3. VICTRELIS [Suspect]
     Indication: PRODUCT USED FOR UNKNOWN INDICATION
     Route: 048
     Dates: start: 20111010, end: 20120521
  4. NEORECORMON [Suspect]
     Indication: PRODUCT USED FOR UNKNOWN INDICATION
     Route: 058
     Dates: start: 20110916, end: 20120529
  5. REVOLADE [Suspect]
     Indication: PRODUCT USED FOR UNKNOWN INDICATION
     Route: 065
     Dates: start: 20120315, end: 20120529
  6. NEUPOGEN [Suspect]
     Indication: PRODUCT USED FOR UNKNOWN INDICATION
     Route: 058
     Dates: start: 20110916, end: 20120529

REACTIONS (6)
  - Oedema peripheral [Recovered/Resolved]
  - Pulmonary hypertensive crisis [Recovered/Resolved]
  - Mitral valve incompetence [None]
  - Aortic valve incompetence [None]
  - Haemoglobin decreased [None]
  - Gamma-glutamyltransferase increased [None]
